FAERS Safety Report 5484629-8 (Version None)
Quarter: 2007Q4

REPORT INFORMATION
  Report Type: 
  Country: None (occurrence: None)
  Receive Date: 20071010
  Receipt Date: 20070926
  Transmission Date: 20080405
  Serious: Yes (Other)
  Sender: FDA-Public Use
  Company Number: FABR-11395

PATIENT
  Age: 64 Year
  Sex: Male
  Weight: 70 kg

DRUGS (9)
  1. FABRAZYME [Suspect]
     Indication: FABRY'S DISEASE
     Dosage: 70 MG Q2WKS IV
     Route: 042
     Dates: start: 20040922
  2. DICLOFENAC SODIUM [Concomitant]
  3. BETAMETHASONE [Concomitant]
  4. D-CHLORPHENIRAMINE MALEATE [Concomitant]
  5. WARFARIN POTASSIUM [Concomitant]
  6. ENALAPRIL MALEATE [Concomitant]
  7. PRECIPITATED CALCIUM  CARBONATE [Concomitant]
  8. MECOBALAMIN [Concomitant]
  9. ALFACALCIDOL [Concomitant]

REACTIONS (1)
  - ATRIAL FIBRILLATION [None]
